FAERS Safety Report 8169953-2 (Version None)
Quarter: 2012Q1

REPORT INFORMATION
  Report Type: 
  Country: None (occurrence: None)
  Receive Date: 20120228
  Receipt Date: 20120228
  Transmission Date: 20120608
  Serious: Yes (Disabling, Other)
  Sender: FDA-Public Use
  Company Number: None

PATIENT
  Age: 40 Year
  Sex: Male
  Weight: 62 kg

DRUGS (3)
  1. ACETAMINOPHEN [Suspect]
     Indication: PYREXIA
     Dosage: 1000 MG
     Route: 042
     Dates: start: 20120222, end: 20120223
  2. INFLIXIMAB [Concomitant]
     Indication: INFLAMMATORY BOWEL DISEASE
     Dosage: 300 MG
     Route: 042
     Dates: start: 20120215, end: 20120215
  3. COLESTIPOL HYDROCHLORIDE [Concomitant]
     Route: 048

REACTIONS (3)
  - ALANINE AMINOTRANSFERASE INCREASED [None]
  - ASPARTATE AMINOTRANSFERASE INCREASED [None]
  - TOXICITY TO VARIOUS AGENTS [None]
